FAERS Safety Report 21729444 (Version 1)
Quarter: 2022Q4

REPORT INFORMATION
  Report Type: Spontaneous
  Country: CA (occurrence: CA)
  Receive Date: 20221214
  Receipt Date: 20221214
  Transmission Date: 20230113
  Serious: Yes (Other)
  Sender: FDA-Public Use
  Company Number: CA-PFIZER INC-202201361241

PATIENT
  Age: 70 Year
  Sex: Male

DRUGS (1)
  1. VYNDAQEL [Suspect]
     Active Substance: TAFAMIDIS MEGLUMINE
     Indication: Cardiac amyloidosis
     Dosage: 80 MG, 1X/DAY
     Route: 048
     Dates: start: 2021

REACTIONS (4)
  - Atrial fibrillation [Unknown]
  - Cardiac failure chronic [Unknown]
  - Atrial flutter [Unknown]
  - Left ventricular hypertrophy [Unknown]
